FAERS Safety Report 16048699 (Version 1)
Quarter: 2019Q1

REPORT INFORMATION
  Report Type: Spontaneous
  Country: CN (occurrence: CN)
  Receive Date: 20190307
  Receipt Date: 20190307
  Transmission Date: 20190418
  Serious: Yes (Other)
  Sender: FDA-Public Use
  Company Number: CN-009507513-1902CHN010842

PATIENT
  Age: 60 Year
  Sex: Female
  Weight: 55 kg

DRUGS (11)
  1. OSELTAMIVIR PHOSPHATE. [Suspect]
     Active Substance: OSELTAMIVIR PHOSPHATE
     Indication: PNEUMONIA
  2. AMINOPHYLLINE. [Suspect]
     Active Substance: AMINOPHYLLINE
     Indication: AZOTAEMIA
  3. TIENAM [Suspect]
     Active Substance: CILASTATIN SODIUM\IMIPENEM
     Indication: PNEUMONIA
  4. TIENAM [Suspect]
     Active Substance: CILASTATIN SODIUM\IMIPENEM
     Indication: AZOTAEMIA
  5. AMINOPHYLLINE. [Suspect]
     Active Substance: AMINOPHYLLINE
     Indication: PNEUMONIA
  6. SODIUM CHLORIDE. [Concomitant]
     Active Substance: SODIUM CHLORIDE
     Dosage: 50 MILLILITER, 1 (FREQUENCY) 1 (ACCUMULATE DAY)
     Route: 042
     Dates: start: 20190205, end: 20190215
  7. TIENAM [Suspect]
     Active Substance: CILASTATIN SODIUM\IMIPENEM
     Indication: CARDIAC FAILURE
     Dosage: 1 GRAM, 2 (FREQUENCY) 1 (ACCUMULATE DAY)
     Route: 042
     Dates: start: 20190205, end: 20190215
  8. AMINOPHYLLINE. [Suspect]
     Active Substance: AMINOPHYLLINE
     Indication: CARDIAC FAILURE
     Dosage: 0.25 GRAM, 1 (FREQUENCY) 1 (ACCUMULATE DAY)
     Route: 042
     Dates: start: 20190205, end: 20190215
  9. OSELTAMIVIR PHOSPHATE. [Suspect]
     Active Substance: OSELTAMIVIR PHOSPHATE
     Indication: CARDIAC FAILURE
     Dosage: 75 MILLIGRAM, BID
     Route: 048
     Dates: start: 20190207, end: 20190215
  10. SODIUM CHLORIDE. [Concomitant]
     Active Substance: SODIUM CHLORIDE
     Dosage: 100 MILLILITER, 2 (FREQUENCY) (2 ACCUMULATE DAYS)
     Route: 042
     Dates: start: 20190205, end: 20190215
  11. OSELTAMIVIR PHOSPHATE. [Suspect]
     Active Substance: OSELTAMIVIR PHOSPHATE
     Indication: AZOTAEMIA

REACTIONS (3)
  - Hallucination [Recovering/Resolving]
  - Agitation [Recovering/Resolving]
  - Disorganised speech [Recovering/Resolving]

NARRATIVE: CASE EVENT DATE: 20190213
